FAERS Safety Report 25959301 (Version 1)
Quarter: 2025Q4

REPORT INFORMATION
  Report Type: Spontaneous
  Country: EU (occurrence: EU)
  Receive Date: 20251025
  Receipt Date: 20251025
  Transmission Date: 20260117
  Serious: Yes (Death, Other)
  Sender: AMGEN
  Company Number: EU-AMGEN-ITASP2025210166

PATIENT

DRUGS (1)
  1. BLINATUMOMAB [Suspect]
     Active Substance: BLINATUMOMAB
     Indication: B-cell lymphoma
     Dosage: UNK
     Route: 065

REACTIONS (14)
  - Chronic graft versus host disease [Fatal]
  - Death [Fatal]
  - Disease complication [Fatal]
  - Infection [Fatal]
  - COVID-19 [Fatal]
  - Cardiac disorder [Fatal]
  - B-cell lymphoma recurrent [Fatal]
  - Neoplasm [Fatal]
  - Acute leukaemia [Fatal]
  - Toxicity to various agents [Fatal]
  - Cognitive disorder [Fatal]
  - Dementia [Fatal]
  - Multiple organ dysfunction syndrome [Fatal]
  - Acute graft versus host disease [Unknown]
